FAERS Safety Report 15058942 (Version 7)
Quarter: 2018Q3

REPORT INFORMATION
  Report Type: Report from Study
  Country: SI (occurrence: SI)
  Receive Date: 20180625
  Receipt Date: 20180925
  Transmission Date: 20181010
  Serious: Yes (Life-Threatening, Hospitalization)
  Sender: FDA-Public Use
  Company Number: SI-PFIZER INC-2018251844

PATIENT
  Age: 84 Year
  Sex: Male
  Weight: 76 kg

DRUGS (13)
  1. ZALDIAR [Concomitant]
     Active Substance: ACETAMINOPHEN\TRAMADOL HYDROCHLORIDE
     Indication: ABDOMINAL PAIN
     Dosage: 1 DF, AS NEEDED
     Route: 048
     Dates: start: 20141212, end: 20141216
  2. INVANZ [Concomitant]
     Active Substance: ERTAPENEM SODIUM
     Indication: INFECTION
     Dosage: 1 G 1X/DAY AS NECESSARY
     Route: 042
     Dates: start: 20141207, end: 20141210
  3. ZYTIGA [Suspect]
     Active Substance: ABIRATERONE ACETATE
     Indication: PROSTATE CANCER METASTATIC
     Dosage: 1000 MG, 1X/DAY
     Route: 048
     Dates: start: 20140922, end: 20160930
  4. ENZALUTAMIDE [Concomitant]
     Active Substance: ENZALUTAMIDE
     Indication: PROSTATE CANCER METASTATIC
     Dosage: 160 MG, UNK
     Route: 048
     Dates: start: 20151104, end: 20160330
  5. ANALGIN /06276704/ [Concomitant]
     Indication: ABDOMINAL PAIN
     Dosage: 500 MG, AS NEEDED
     Route: 048
     Dates: start: 20141205
  6. PERFALGAN [Concomitant]
     Active Substance: ACETAMINOPHEN
     Indication: PYREXIA
     Dosage: 1 G, 1X/DAY
     Route: 042
     Dates: start: 20141209, end: 20141216
  7. PANTOPRAZOL [Concomitant]
     Active Substance: PANTOPRAZOLE SODIUM
     Indication: PROPHYLAXIS AGAINST GASTROINTESTINAL ULCER
     Dosage: 40 MG, 1X/DAY
     Route: 048
     Dates: start: 20141211, end: 20141216
  8. GRANISETRON [Concomitant]
     Active Substance: GRANISETRON
     Indication: NAUSEA
     Dosage: 1 DF, 2500 IU, AS NEEDED
     Route: 058
     Dates: start: 20141215, end: 20141216
  9. FRAGMIN [Concomitant]
     Active Substance: DALTEPARIN SODIUM
     Indication: THROMBOSIS PROPHYLAXIS
     Dosage: 1 DF, 2500 IU, AS NEEDED
     Route: 058
     Dates: start: 20141205
  10. ZOLEDRONIC ACID [Suspect]
     Active Substance: ZOLEDRONIC ACID
     Indication: PROSTATE CANCER METASTATIC
     Dosage: 4 MG, UNK
     Route: 042
     Dates: start: 20081012, end: 20151021
  11. LEUPRORELIN [Suspect]
     Active Substance: LEUPROLIDE ACETATE
     Indication: PROSTATE CANCER METASTATIC
     Dosage: 22.5 MG, UNK
     Route: 058
     Dates: start: 200811
  12. MEDROL [Suspect]
     Active Substance: METHYLPREDNISOLONE
     Indication: PROSTATE CANCER METASTATIC
     Dosage: 8 MG, 1X/DAY
     Route: 048
     Dates: start: 20140922, end: 201412
  13. SUMAMED [Concomitant]
     Active Substance: AZITHROMYCIN ANHYDROUS
     Indication: INFECTION
     Dosage: 500 MG, 1X/DAY
     Route: 042
     Dates: start: 20141207, end: 20141209

REACTIONS (3)
  - Colorectal cancer [Recovering/Resolving]
  - Sepsis [Recovered/Resolved]
  - Haematochezia [Recovered/Resolved]

NARRATIVE: CASE EVENT DATE: 20141202
